FAERS Safety Report 8305846-5 (Version None)
Quarter: 2012Q2

REPORT INFORMATION
  Report Type: 
  Country: None (occurrence: None)
  Receive Date: 20120423
  Receipt Date: 20120416
  Transmission Date: 20120825
  Serious: Yes (Other)
  Sender: FDA-Public Use
  Company Number: CA-JNJFOC-20120407353

PATIENT
  Sex: Male

DRUGS (2)
  1. STELARA [Suspect]
     Indication: FISTULA
     Route: 042
  2. STELARA [Suspect]
     Indication: CROHN'S DISEASE
     Route: 042

REACTIONS (1)
  - BRONCHITIS [None]
